FAERS Safety Report 15597743 (Version 1)
Quarter: 2018Q4

REPORT INFORMATION
  Report Type: Spontaneous
  Country: GB (occurrence: GB)
  Receive Date: 20181108
  Receipt Date: 20181108
  Transmission Date: 20190205
  Serious: Yes (Hospitalization, Other)
  Sender: FDA-Public Use
  Company Number: GB-LINDE-GB-LHC-2018249

PATIENT
  Age: 63 Year
  Sex: Male

DRUGS (1)
  1. OXYGEN (GENERIC) [Suspect]
     Active Substance: OXYGEN
     Indication: PRODUCT USED FOR UNKNOWN INDICATION
     Route: 055

REACTIONS (1)
  - Herpes simplex [Recovered/Resolved]
